FAERS Safety Report 6282678-3 (Version None)
Quarter: 2009Q3

REPORT INFORMATION
  Report Type: 
  Country: None (occurrence: None)
  Receive Date: 20090722
  Receipt Date: 20090722
  Transmission Date: 20100115
  Serious: No
  Sender: FDA-Public Use
  Company Number: None

PATIENT
  Age: 71 Year
  Sex: Male
  Weight: 96.95 kg

DRUGS (1)
  1. TAMSULOSIN HCL [Suspect]
     Dosage: 0.8 MG EVERY DAY PO
     Route: 048
     Dates: start: 20060620, end: 20090717

REACTIONS (2)
  - DIZZINESS [None]
  - PRESYNCOPE [None]
